FAERS Safety Report 20305710 (Version 4)
Quarter: 2022Q4

REPORT INFORMATION
  Report Type: Spontaneous
  Country: FR (occurrence: FR)
  Receive Date: 20220106
  Receipt Date: 20221020
  Transmission Date: 20230113
  Serious: Yes (Hospitalization, Disabling, Other)
  Sender: FDA-Public Use
  Company Number: FR-NOVARTISPH-NVSC2021FR301883

PATIENT
  Age: 33 Year
  Sex: Male

DRUGS (33)
  1. TEGRETOL [Suspect]
     Active Substance: CARBAMAZEPINE
     Indication: Headache
     Dosage: 200 MG
     Route: 065
     Dates: start: 20200222
  2. TEGRETOL [Suspect]
     Active Substance: CARBAMAZEPINE
     Dosage: 100 MG
     Route: 065
     Dates: start: 20200224
  3. KETOPROFEN [Concomitant]
     Active Substance: KETOPROFEN
     Indication: Product used for unknown indication
     Dosage: 100 MG
     Route: 065
  4. SUMATRIPTAN [Concomitant]
     Active Substance: SUMATRIPTAN
     Indication: Product used for unknown indication
     Dosage: 100 MG
     Route: 065
  5. TRAMADOL [Concomitant]
     Active Substance: TRAMADOL
     Indication: Product used for unknown indication
     Dosage: 50 MG, TID
     Route: 065
  6. CEFOTAXIME [Concomitant]
     Active Substance: CEFOTAXIME SODIUM
     Indication: Product used for unknown indication
     Dosage: 6 MG/ 24 H
     Route: 042
     Dates: start: 20200319
  7. VANCOMYCIN [Concomitant]
     Active Substance: VANCOMYCIN
     Indication: Product used for unknown indication
     Dosage: 1 G, QID
     Route: 042
     Dates: start: 20200319
  8. MIDAZOLAM HYDROCHLORIDE [Concomitant]
     Active Substance: MIDAZOLAM HYDROCHLORIDE
     Indication: Product used for unknown indication
     Dosage: 15 MG/ H
     Route: 042
  9. SUFENTANIL ACTAVIS [Concomitant]
     Indication: Product used for unknown indication
     Dosage: 20 UG/ H+ BOLUS 10?G IF DISCOMFORT
     Route: 042
  10. NORADRENALINE PCH [Concomitant]
     Indication: Product used for unknown indication
     Dosage: } 65MMHG
     Route: 042
  11. PANTOPRAZOLE [Concomitant]
     Active Substance: PANTOPRAZOLE
     Indication: Product used for unknown indication
     Dosage: 40 MG/ 24 H
     Route: 042
  12. FRESUBIN [Concomitant]
     Active Substance: AMINO ACIDS\DEXTROSE\ELECTROLYTES NOS\SOYBEAN OIL\VITAMINS
     Indication: Product used for unknown indication
     Dosage: 900 ML/24 H
     Route: 065
  13. VITAMIN A [Concomitant]
     Active Substance: VITAMIN A
     Indication: Product used for unknown indication
     Dosage: UNK (EVERY 2 HR)
     Route: 065
  14. LACTATED RINGERS SOLUTION [Concomitant]
     Active Substance: CALCIUM CHLORIDE\POTASSIUM CHLORIDE\SODIUM CHLORIDE\SODIUM LACTATE
     Indication: Product used for unknown indication
     Dosage: 2000ML + CACL2 2 VIALS + B1 500MG + B6 250MG + PP 100MG + DECAN 1VIAL + CERNEVIT 1 VIAL/24H
     Route: 065
  15. VITAMIN K [Concomitant]
     Active Substance: PHYTONADIONE
     Indication: Product used for unknown indication
     Dosage: UNK (ONCE WEEKLY ON WEDNESDAY)
     Route: 065
  16. LEUCOVORIN CALCIUM [Concomitant]
     Active Substance: LEUCOVORIN CALCIUM
     Indication: Product used for unknown indication
     Dosage: 50 MG, QW (ON WEDNESDAY)
     Route: 065
  17. SODIUM CHLORIDE [Concomitant]
     Active Substance: SODIUM CHLORIDE
     Indication: Product used for unknown indication
     Dosage: 0.9 %/ 3H. IF INCREASE OF MEAN BLOOD PRESSURE } 3 MMHG, FILL IT AGAIN IMMEDIATELY, IF NOT, WAIT 3H
     Route: 065
  18. VASELINE PURE [Concomitant]
     Active Substance: PETROLATUM
     Indication: Product used for unknown indication
     Dosage: UNK UNK, QD
     Route: 065
  19. PROPRANOLOL HYDROCHLORIDE [Concomitant]
     Active Substance: PROPRANOLOL HYDROCHLORIDE
     Indication: Product used for unknown indication
     Dosage: 40 MG, TID
     Route: 065
  20. DAFALGAN [Concomitant]
     Active Substance: ACETAMINOPHEN
     Indication: Product used for unknown indication
     Dosage: 500 MG (1000MGX4/DAY)
     Route: 048
  21. XANAX XR [Concomitant]
     Active Substance: ALPRAZOLAM
     Indication: Product used for unknown indication
     Dosage: 0.25 MG, QD (AT BEDTIME)
     Route: 065
  22. LOVENOX [Concomitant]
     Active Substance: ENOXAPARIN SODIUM
     Indication: Product used for unknown indication
     Dosage: 6000 IU
     Route: 058
  23. HYALURONATE SODIUM [Concomitant]
     Active Substance: HYALURONATE SODIUM
     Indication: Product used for unknown indication
     Dosage: 1 DOSAGE FORM, QID
     Route: 065
  24. REFRESH CELLUVISC [Concomitant]
     Active Substance: CARBOXYMETHYLCELLULOSE SODIUM
     Indication: Product used for unknown indication
     Dosage: 1 DOSAGE FORM, QID
     Route: 065
  25. CICLOSPORINE PCH [Concomitant]
     Indication: Product used for unknown indication
     Dosage: UNK, BID (1 DROP MORNING AND EVENING IN THE RIGHT EYE.)
     Route: 065
  26. MELATONIN [Concomitant]
     Active Substance: MELATONIN
     Indication: Product used for unknown indication
     Route: 065
  27. DOLIPRANE [Concomitant]
     Active Substance: ACETAMINOPHEN
     Indication: Product used for unknown indication
     Dosage: 1 G IF PAIN, MAXIMUM 3 PER DAY.
     Route: 065
  28. XYLOCAINE [Concomitant]
     Active Substance: LIDOCAINE HYDROCHLORIDE
     Indication: Product used for unknown indication
     Dosage: 24 ML
     Route: 065
  29. MYCOSTATIN [Concomitant]
     Active Substance: NYSTATIN
     Indication: Product used for unknown indication
     Dosage: 24 ML
     Route: 065
  30. AUTOLOGOUS HUMAN CORNEAL EPITHELIAL CELLS [Concomitant]
     Indication: Product used for unknown indication
     Dosage: UNK, QID
     Route: 065
  31. RAMIPRIL [Concomitant]
     Active Substance: RAMIPRIL
     Indication: Product used for unknown indication
     Dosage: 1 DOSAGE FORM
     Route: 065
  32. CLINUTREN HP ENERGY [Concomitant]
     Indication: Product used for unknown indication
     Dosage: UNK UNK, TID
     Route: 065
  33. DEXERYL [Concomitant]
     Indication: Product used for unknown indication
     Dosage: UNK (1 APPLICATION PER DAY ON ALL THE BODY AND FACE. 8 TUBES/MONTH)
     Route: 065

REACTIONS (40)
  - Pyrexia [Unknown]
  - Skin ulcer [Unknown]
  - Rash vesicular [Unknown]
  - Toxic epidermal necrolysis [Unknown]
  - Acute respiratory distress syndrome [Unknown]
  - Acute kidney injury [Unknown]
  - Conjunctivitis [Unknown]
  - Ulcerative keratitis [Unknown]
  - Candida infection [Unknown]
  - Malnutrition [Unknown]
  - Dysphagia [Unknown]
  - Eye abscess [Unknown]
  - Malaise [Unknown]
  - Sepsis [Recovering/Resolving]
  - Hypovolaemic shock [Unknown]
  - Septic shock [Unknown]
  - Dyspnoea [Recovering/Resolving]
  - Obstructive airways disorder [Recovering/Resolving]
  - Laryngeal discomfort [Not Recovered/Not Resolved]
  - Chest pain [Not Recovered/Not Resolved]
  - Mental disorder [Not Recovered/Not Resolved]
  - Ulnar nerve injury [Unknown]
  - Motor dysfunction [Unknown]
  - Mobility decreased [Unknown]
  - Stevens-Johnson syndrome [Unknown]
  - Stomatitis [Unknown]
  - Ocular discomfort [Unknown]
  - Macule [Unknown]
  - Eye pain [Unknown]
  - Anxiety disorder [Unknown]
  - Photophobia [Unknown]
  - Tachycardia [Unknown]
  - Insomnia [Unknown]
  - Nightmare [Unknown]
  - Emotional disorder [Unknown]
  - Behaviour disorder [Unknown]
  - Sleep disorder [Unknown]
  - Corneal scar [Unknown]
  - Limbal stem cell deficiency [Unknown]
  - Eye injury [Unknown]

NARRATIVE: CASE EVENT DATE: 20200312
